FAERS Safety Report 8545885 (Version 2)
Quarter: 2013Q1

REPORT INFORMATION
  Report Type: Spontaneous
  Country: US (occurrence: US)
  Receive Date: 20120504
  Receipt Date: 20120906
  Transmission Date: 20140127
  Serious: Yes (Hospitalization, Other)
  Sender: FDA-Public Use
  Company Number: US-BIOGENIDEC-2012BI014512

PATIENT
  Age: 66 Year
  Sex: Male

DRUGS (5)
  1. XYREM (500 MG/ML SOLUTION)(SODIUM OXYBATE) [Suspect]
     Indication: MULTIPLE SCLEROSIS
     Dosage: 4.25 GM,?
     Route: 048
     Dates: start: 20030721
  2. ASPIRIN [Suspect]
     Indication: MULTIPLE SCLEROSIS
     Dates: start: 2010
  3. ENOXAPARIN SODIUM (INJECTION) [Suspect]
     Route: 058
     Dates: start: 201203, end: 201203
  4. MULTIPLE UNSPECIFIED MEDICATIONS [Concomitant]
  5. CLOPIDOGREL BISULFATE [Concomitant]

REACTIONS (4)
  - Multiple sclerosis relapse [Not Recovered/Not Resolved]
  - Arthritis infective [None]
  - Fracture [None]
  - Coagulopathy [None]
